FAERS Safety Report 4798349-6 (Version None)
Quarter: 2005Q4

REPORT INFORMATION
  Report Type: 
  Country: None (occurrence: None)
  Receive Date: 20051011
  Receipt Date: 20050825
  Transmission Date: 20060501
  Serious: Yes (Death)
  Sender: FDA-Public Use
  Company Number: 142564USA

PATIENT
  Age: 68 Year
  Sex: Female

DRUGS (10)
  1. COPAXONE [Suspect]
     Indication: MULTIPLE SCLEROSIS
     Dates: start: 20021107, end: 20050702
  2. ASPIRIN [Concomitant]
  3. COUMADIN [Concomitant]
  4. POTASSIUM [Concomitant]
  5. LASIX [Concomitant]
  6. LISINOPRIL [Concomitant]
  7. AMANTADINE [Concomitant]
  8. METOPROLOL [Concomitant]
  9. XANAX [Concomitant]
  10. AMBIEN [Concomitant]

REACTIONS (10)
  - ARRHYTHMIA [None]
  - CARDIAC FAILURE [None]
  - CORONARY ARTERY DISEASE [None]
  - MYOCARDIAL INFARCTION [None]
  - OVARIAN CANCER [None]
  - POST PROCEDURAL COMPLICATION [None]
  - POSTMENOPAUSAL HAEMORRHAGE [None]
  - THROMBOSIS [None]
  - TRANSIENT ISCHAEMIC ATTACK [None]
  - VASCULAR INSUFFICIENCY [None]
